FAERS Safety Report 9115688 (Version 3)
Quarter: 2013Q1

REPORT INFORMATION
  Report Type: Spontaneous
  Country: JP (occurrence: JP)
  Receive Date: 20130225
  Receipt Date: 20130308
  Transmission Date: 20140127
  Serious: Yes (Other)
  Sender: FDA-Public Use
  Company Number: JP-PFIZER INC-2013065462

PATIENT
  Age: 53 Year
  Sex: Female

DRUGS (6)
  1. VANCOMYCIN [Suspect]
  2. ESOMEPRAZOLE [Suspect]
  3. SPIRONOLACTONE [Suspect]
     Route: 048
  4. LOXOPROFEN [Suspect]
  5. MEROPENEM [Concomitant]
  6. LEVOFLOXACIN [Concomitant]
     Dosage: UNK

REACTIONS (1)
  - Tubulointerstitial nephritis [Recovering/Resolving]
